FAERS Safety Report 8373988-4 (Version None)
Quarter: 2012Q2

REPORT INFORMATION
  Report Type: 
  Country: None (occurrence: None)
  Receive Date: 20120521
  Receipt Date: 20120517
  Transmission Date: 20120825
  Serious: Yes (Death, Other)
  Sender: FDA-Public Use
  Company Number: CN-ASTRAZENECA-2012SE30677

PATIENT
  Age: 95 Year
  Sex: Female

DRUGS (3)
  1. MUCOSOLVIN [Suspect]
     Dates: start: 20120319, end: 20120319
  2. DRUGS ORAL FOR PUMONARY INFECTION [Concomitant]
     Indication: LUNG INFECTION
  3. OMEPRAZOLE (PRISOLEC) [Suspect]
     Route: 042
     Dates: start: 20120319, end: 20120319

REACTIONS (2)
  - FLATULENCE [None]
  - WRONG TECHNIQUE IN DRUG USAGE PROCESS [None]
